FAERS Safety Report 5241085-2 (Version None)
Quarter: 2007Q1

REPORT INFORMATION
  Report Type: 
  Country: None (occurrence: None)
  Receive Date: 20070214
  Receipt Date: 20070214
  Transmission Date: 20070707
  Serious: Yes (Life-Threatening)
  Sender: FDA-Public Use
  Company Number: None

PATIENT
  Age: 83 Year
  Sex: Male
  Weight: 68.4932 kg

DRUGS (1)
  1. GADOLINIUM [Suspect]

REACTIONS (3)
  - NEPHROGENIC FIBROSING DERMOPATHY [None]
  - PAIN [None]
  - WEIGHT DECREASED [None]
